FAERS Safety Report 18183219 (Version 2)
Quarter: 2020Q3

REPORT INFORMATION
  Report Type: Spontaneous
  Country: JP (occurrence: JP)
  Receive Date: 20200821
  Receipt Date: 20200826
  Transmission Date: 20201103
  Serious: Yes (Other)
  Sender: FDA-Public Use
  Company Number: JP-SA-2020SA212104

PATIENT

DRUGS (4)
  1. AFLIBERCEPT [Suspect]
     Active Substance: AFLIBERCEPT
     Indication: MACULAR OEDEMA
     Dosage: UNK
     Route: 031
  2. LEVOFLOXACIN. [Concomitant]
     Active Substance: LEVOFLOXACIN
     Dosage: 1.5 %, QID (OPHTHALMIC SOLUTION)
     Route: 061
  3. TRIAMCINOLONE ACETONIDE. [Suspect]
     Active Substance: TRIAMCINOLONE ACETONIDE
     Indication: MACULAR OEDEMA
     Dosage: 20 MG, TWICE (POSTERIOR SUBTENON SPACE)
  4. LIDOCAINE. [Concomitant]
     Active Substance: LIDOCAINE
     Indication: ANAESTHESIA EYE
     Dosage: 4 %
     Route: 061

REACTIONS (10)
  - Disease progression [Recovered/Resolved]
  - Ocular hyperaemia [Recovered/Resolved]
  - Eye pain [Recovered/Resolved]
  - Conjunctival disorder [Recovered/Resolved]
  - Therapy non-responder [Unknown]
  - Periorbital abscess [Recovered/Resolved]
  - Eye infection fungal [Recovered/Resolved]
  - Eye discharge [Recovered/Resolved]
  - Periorbital fat herniation [Recovered/Resolved]
  - Eye infection bacterial [Recovered/Resolved]
